FAERS Safety Report 11981528 (Version 1)
Quarter: 2016Q1

REPORT INFORMATION
  Report Type: Spontaneous
  Country: US (occurrence: US)
  Receive Date: 20160130
  Receipt Date: 20160130
  Transmission Date: 20160526
  Serious: No
  Sender: FDA-Public Use
  Company Number: US-FRESENIUS KABI-FK201500899

PATIENT

DRUGS (1)
  1. MAGNESIUM SULFATE INJECTION, USP [Suspect]
     Active Substance: MAGNESIUM SULFATE
     Indication: PRODUCT USED FOR UNKNOWN INDICATION
     Route: 065

REACTIONS (5)
  - Drug effect increased [Unknown]
  - Pain [Unknown]
  - Blood magnesium increased [Unknown]
  - Flushing [Unknown]
  - Dizziness [Unknown]
